FAERS Safety Report 6202857-0 (Version None)
Quarter: 2009Q2

REPORT INFORMATION
  Report Type: 
  Country: None (occurrence: None)
  Receive Date: 20090526
  Receipt Date: 20090518
  Transmission Date: 20091009
  Serious: Yes (Other)
  Sender: FDA-Public Use
  Company Number: US-JNJCH-2009014006

PATIENT
  Age: 49 Year
  Sex: Female
  Weight: 117.9 kg

DRUGS (3)
  1. BENADRYL [Suspect]
     Indication: EAR PAIN
     Dosage: TEXT:^ADULT DOSAGE^
     Route: 048
     Dates: start: 20090501, end: 20090511
  2. COUGH AND COLD PREPARATIONS [Suspect]
     Indication: EAR PAIN
     Dosage: TEXT:2 CAPLETS EVERY FOUR HOURS
     Route: 048
  3. ADVIL [Suspect]
     Indication: EAR PAIN
     Dosage: TEXT:^ADULT DOSAGE^
     Route: 048
     Dates: start: 20090501, end: 20090511

REACTIONS (3)
  - DYSSTASIA [None]
  - URTICARIA [None]
  - VOMITING [None]
